FAERS Safety Report 11114623 (Version 3)
Quarter: 2015Q2

REPORT INFORMATION
  Report Type: Report from Study
  Country: CA (occurrence: CA)
  Receive Date: 20150515
  Receipt Date: 20150525
  Transmission Date: 20150821
  Serious: Yes (Other)
  Sender: FDA-Public Use
  Company Number: CA-ROCHE-1547129

PATIENT
  Age: 82 Year
  Sex: Female

DRUGS (9)
  1. RABEPRAZOLE [Concomitant]
     Active Substance: RABEPRAZOLE
  2. CRESTOR [Concomitant]
     Active Substance: ROSUVASTATIN CALCIUM
  3. SYNTHROID [Concomitant]
     Active Substance: LEVOTHYROXINE SODIUM
  4. RISEDRONATE [Concomitant]
     Active Substance: RISEDRONATE SODIUM
  5. WARFARIN [Concomitant]
     Active Substance: WARFARIN
  6. PREDNISONE. [Concomitant]
     Active Substance: PREDNISONE
  7. ACTEMRA [Suspect]
     Active Substance: TOCILIZUMAB
     Indication: RHEUMATOID ARTHRITIS
     Route: 042
     Dates: start: 20141204
  8. FUROSEMIDE. [Concomitant]
     Active Substance: FUROSEMIDE
  9. ATENOLOL. [Concomitant]
     Active Substance: ATENOLOL

REACTIONS (8)
  - Infusion related reaction [Unknown]
  - Dyspnoea [Not Recovered/Not Resolved]
  - Blood test abnormal [Unknown]
  - Cataract [Unknown]
  - Blood urine present [Unknown]
  - Bladder neoplasm [Not Recovered/Not Resolved]
  - Cystitis [Recovering/Resolving]
  - Ultrasound scan abnormal [Unknown]

NARRATIVE: CASE EVENT DATE: 2015
